FAERS Safety Report 6540125-8 (Version None)
Quarter: 2010Q1

REPORT INFORMATION
  Report Type: 
  Country: None (occurrence: None)
  Receive Date: 20100115
  Receipt Date: 20100104
  Transmission Date: 20100710
  Serious: Yes (Hospitalization)
  Sender: FDA-Public Use
  Company Number: GB-WATSON-2010-00101

PATIENT
  Age: 34 Year
  Sex: Female

DRUGS (3)
  1. CIPROFLOXACIN HCL [Suspect]
     Indication: URINARY TRACT INFECTION
     Dosage: UNK
  2. CEFUROXIME SODIUM [Suspect]
     Indication: URINARY TRACT INFECTION
  3. NEXT CHOICE (WATSON LABORATORIES) [Suspect]
     Indication: CONTRACEPTION
     Dosage: 20 UG, UNK

REACTIONS (9)
  - ABDOMINAL PAIN LOWER [None]
  - AMENORRHOEA [None]
  - DEVICE DISLOCATION [None]
  - DRUG INEFFECTIVE [None]
  - NAUSEA [None]
  - STAPHYLOCOCCAL SEPSIS [None]
  - SUPRAPUBIC PAIN [None]
  - URINARY TRACT INFECTION [None]
  - VOMITING [None]
